FAERS Safety Report 9199950 (Version 1)
Quarter: 2013Q1

REPORT INFORMATION
  Report Type: Spontaneous
  Country: US (occurrence: US)
  Receive Date: 20130329
  Receipt Date: 20130329
  Transmission Date: 20140127
  Serious: No
  Sender: FDA-Public Use
  Company Number: US-JHP PHARMACEUTICALS, LLC-JHP201200495

PATIENT
  Sex: Male

DRUGS (4)
  1. DANTRIUM [Suspect]
     Indication: CEREBRAL PALSY
     Dosage: 50 MG, AT NIGHT
     Route: 042
     Dates: start: 20121014
  2. DANTRIUM [Suspect]
     Dosage: 35 MG, IN THE MORNING
     Route: 042
     Dates: start: 20121015
  3. DANTROLENE SODIUM [Concomitant]
     Indication: CEREBRAL PALSY
     Dosage: 50 MG, IN THE MONING
     Route: 048
     Dates: end: 20121014
  4. DANTROLENE SODIUM [Concomitant]
     Dosage: 75 MG, AT NIGHT
     Dates: end: 20121014

REACTIONS (2)
  - Extravasation [Unknown]
  - Off label use [Unknown]
